FAERS Safety Report 8799749 (Version 1)
Quarter: 2012Q4

REPORT INFORMATION
  Report Type: Spontaneous
  Country: US (occurrence: None)
  Receive Date: 20120917
  Receipt Date: 20120917
  Transmission Date: 20130627
  Serious: Yes (Hospitalization)
  Sender: FDA-Public Use
  Company Number: UTC-022873

PATIENT
  Age: 60 Year
  Sex: Female
  Weight: 62.73 kg

DRUGS (2)
  1. TYVASO (6 MICROGRAM, AEROSOL FOR INHALATION) (TREPROSTINIL SODIUM) [Suspect]
     Indication: PRIMARY PULMONARY HYPERTENSION
     Dosage: 18 to 54 mcgs (4 in 1 D), Inhalation
     Route: 055
     Dates: start: 20120630
  2. LETAIRIS (AMBRISENTAN) [Concomitant]

REACTIONS (1)
  - Pericardial effusion [None]
